FAERS Safety Report 10523342 (Version 1)
Quarter: 2014Q4

REPORT INFORMATION
  Report Type: Spontaneous
  Country: US (occurrence: US)
  Receive Date: 20141016
  Receipt Date: 20141016
  Transmission Date: 20150528
  Serious: Yes (Hospitalization, Other)
  Sender: FDA-Public Use
  Company Number: US-ELI_LILLY_AND_COMPANY-US201410002648

PATIENT
  Age: 53 Year
  Sex: Female
  Weight: 95.24 kg

DRUGS (1)
  1. HUMALOG [Suspect]
     Active Substance: INSULIN LISPRO
     Indication: PRODUCT USED FOR UNKNOWN INDICATION
     Route: 058

REACTIONS (11)
  - Injury [Unknown]
  - Hypoglycaemic seizure [Recovered/Resolved]
  - Tremor [Unknown]
  - Blood glucose abnormal [Unknown]
  - Sepsis [Unknown]
  - Hypoglycaemic unconsciousness [Unknown]
  - Neoplasm malignant [Recovered/Resolved]
  - Hypoglycaemic unconsciousness [Unknown]
  - Dysarthria [Unknown]
  - Fall [Unknown]
  - Hyperhidrosis [Unknown]

NARRATIVE: CASE EVENT DATE: 20140921
